FAERS Safety Report 6988210-0 (Version None)
Quarter: 2010Q3

REPORT INFORMATION
  Report Type: 
  Country: None (occurrence: None)
  Receive Date: 20100916
  Receipt Date: 20100909
  Transmission Date: 20110219
  Serious: Yes (Other)
  Sender: FDA-Public Use
  Company Number: US-NAPPMUNDI-USA-2010-0046756

PATIENT
  Sex: Male

DRUGS (1)
  1. OXYCONTIN [Suspect]
     Indication: ARNOLD-CHIARI MALFORMATION
     Dosage: 60 MG, UNK

REACTIONS (4)
  - DRUG WITHDRAWAL SYNDROME [None]
  - FIBROMYALGIA [None]
  - NEOPLASM MALIGNANT [None]
  - NEPHROLITHIASIS [None]
